FAERS Safety Report 6673021-6 (Version None)
Quarter: 2010Q2

REPORT INFORMATION
  Report Type: 
  Country: None (occurrence: None)
  Receive Date: 20100408
  Receipt Date: 20100331
  Transmission Date: 20101027
  Serious: Yes (Life-Threatening, Hospitalization)
  Sender: FDA-Public Use
  Company Number: B0645846A

PATIENT
  Age: 7 Year
  Sex: Male
  Weight: 25 kg

DRUGS (3)
  1. AUGMENTIN '125' [Suspect]
     Route: 065
     Dates: start: 20100317, end: 20100317
  2. ROXITHROMYCIN [Concomitant]
     Route: 065
     Dates: start: 20100317, end: 20100317
  3. AMBROXOL [Concomitant]
     Route: 065
     Dates: start: 20100317, end: 20100317

REACTIONS (3)
  - EPISTAXIS [None]
  - HAEMORRHAGIC DISORDER [None]
  - IDIOPATHIC THROMBOCYTOPENIC PURPURA [None]
